FAERS Safety Report 7333968-4 (Version None)
Quarter: 2011Q1

REPORT INFORMATION
  Report Type: 
  Country: None (occurrence: None)
  Receive Date: 20110302
  Receipt Date: 20110302
  Transmission Date: 20110831
  Serious: Yes (Hospitalization)
  Sender: FDA-Public Use
  Company Number: None

PATIENT
  Age: 75 Year
  Sex: Female
  Weight: 103.8737 kg

DRUGS (1)
  1. TOPROL-XL [Suspect]
     Indication: DRUG THERAPY CHANGED
     Dosage: 25 MG 1 A DAY
     Dates: start: 20100830, end: 20110201

REACTIONS (5)
  - JOINT SWELLING [None]
  - WHEEZING [None]
  - OEDEMA PERIPHERAL [None]
  - HEART RATE IRREGULAR [None]
  - HEART RATE INCREASED [None]
